FAERS Safety Report 5162622-2 (Version None)
Quarter: 2006Q4

REPORT INFORMATION
  Report Type: 
  Country: None (occurrence: None)
  Receive Date: 20061201
  Receipt Date: 20061121
  Transmission Date: 20070319
  Serious: Yes (Hospitalization)
  Sender: FDA-Public Use
  Company Number: DE-AMGEN-UK201228

PATIENT
  Sex: Female
  Weight: 56 kg

DRUGS (10)
  1. KINERET [Suspect]
     Indication: RHEUMATOID ARTHRITIS
     Route: 058
     Dates: start: 20031201
  2. AZATHIOPRINE [Suspect]
     Route: 065
     Dates: start: 20030601
  3. QUENSYL [Suspect]
     Route: 065
     Dates: start: 20031101, end: 20050101
  4. ETANERCEPT [Concomitant]
     Dates: start: 20050801, end: 20060701
  5. PREDNISOLONE [Concomitant]
     Dates: start: 20060701
  6. AZELASTINE HCL [Concomitant]
     Dates: start: 20060101, end: 20060801
  7. LEVOCETIRIZINE [Concomitant]
     Dates: start: 20060101, end: 20060801
  8. GABAPENTIN [Concomitant]
     Dates: start: 20060101, end: 20060801
  9. PANTOZOL [Concomitant]
     Dates: start: 20060101, end: 20060801
  10. LANTAREL [Concomitant]

REACTIONS (7)
  - GASTROENTERITIS [None]
  - HYPOKALAEMIA [None]
  - KLEBSIELLA INFECTION [None]
  - MIGRAINE [None]
  - NAUSEA [None]
  - PRURITUS [None]
  - URINARY TRACT INFECTION BACTERIAL [None]
